FAERS Safety Report 15477756 (Version 1)
Quarter: 2018Q4

REPORT INFORMATION
  Report Type: Spontaneous
  Country: US (occurrence: US)
  Receive Date: 20181009
  Receipt Date: 20181009
  Transmission Date: 20190205
  Serious: Yes (Other)
  Sender: FDA-Public Use
  Company Number: US-MYLANLABS-2018M1073119

PATIENT
  Sex: Female
  Weight: 64 kg

DRUGS (4)
  1. DILTIAZEM HYDROCHLORIDE EXTENDED-RELEASE CAPSULES USP [Suspect]
     Active Substance: DILTIAZEM HYDROCHLORIDE
     Indication: TACHYCARDIA
     Dosage: 60 MG, BID
     Route: 048
     Dates: start: 201806
  2. DILTIAZEM HYDROCHLORIDE EXTENDED-RELEASE CAPSULES USP [Suspect]
     Active Substance: DILTIAZEM HYDROCHLORIDE
     Dosage: UNK
  3. DILTIAZEM HYDROCHLORIDE EXTENDED-RELEASE CAPSULES USP [Suspect]
     Active Substance: DILTIAZEM HYDROCHLORIDE
     Indication: ARRHYTHMIA
     Dosage: 60 MG, BID
  4. DILTIAZEM HYDROCHLORIDE EXTENDED-RELEASE CAPSULES USP [Suspect]
     Active Substance: DILTIAZEM HYDROCHLORIDE
     Dosage: UNK

REACTIONS (3)
  - Drug effect decreased [Not Recovered/Not Resolved]
  - Palpitations [Not Recovered/Not Resolved]
  - Intentional product use issue [Not Recovered/Not Resolved]
